FAERS Safety Report 7676294-6 (Version None)
Quarter: 2011Q3

REPORT INFORMATION
  Report Type: 
  Country: None (occurrence: None)
  Receive Date: 20110811
  Receipt Date: 20110728
  Transmission Date: 20111222
  Serious: Yes (Hospitalization)
  Sender: FDA-Public Use
  Company Number: IT-CELGENEUS-083-20785-11071113

PATIENT
  Sex: Male

DRUGS (4)
  1. THALIDOMIDE [Suspect]
     Indication: MULTIPLE MYELOMA
     Dosage: 50 MILLIGRAM
     Route: 048
     Dates: start: 20110609, end: 20110614
  2. ALKERAN [Concomitant]
     Route: 065
  3. THALIDOMIDE [Suspect]
     Dosage: 50 MILLIGRAM
     Route: 048
  4. ARANESP [Concomitant]
     Route: 065

REACTIONS (2)
  - HICCUPS [None]
  - DIVERTICULUM OESOPHAGEAL [None]
